FAERS Safety Report 9618065 (Version 2)
Quarter: 2013Q4

REPORT INFORMATION
  Report Type: Spontaneous
  Country: AU (occurrence: AU)
  Receive Date: 20131012
  Receipt Date: 20131012
  Transmission Date: 20140711
  Serious: Yes (Hospitalization, Other)
  Sender: FDA-Public Use
  Company Number: PHHY2013AU104355

PATIENT
  Age: 32 Year
  Sex: Female

DRUGS (5)
  1. VALPROIC ACID [Suspect]
     Indication: CONVULSION
     Dosage: 500 MG, BID
  2. VALPROIC ACID [Interacting]
     Dosage: 1000 MG, BID
  3. FLUOXETINE [Interacting]
     Indication: DEPRESSION
     Dosage: 200 MG/DAY
  4. ANTIASTHMATICS [Concomitant]
  5. OXAZEPAM [Concomitant]
     Indication: CONVULSION

REACTIONS (8)
  - Grand mal convulsion [Recovered/Resolved]
  - Convulsion [Recovered/Resolved]
  - Postictal psychosis [Unknown]
  - Persecutory delusion [Unknown]
  - Hallucination [Unknown]
  - Delusion of grandeur [Unknown]
  - Hypometabolism [Unknown]
  - Urinary incontinence [Unknown]
